FAERS Safety Report 4986373-X (Version None)
Quarter: 2006Q2

REPORT INFORMATION
  Report Type: 
  Country: None (occurrence: None)
  Receive Date: 20060428
  Receipt Date: 20060420
  Transmission Date: 20061013
  Serious: Yes (Hospitalization)
  Sender: FDA-Public Use
  Company Number: JP-JPN-A200601310

PATIENT
  Age: 30 Year
  Sex: Female

DRUGS (3)
  1. ZOVIRAX [Suspect]
     Indication: HERPETIC STOMATITIS
     Dosage: 5MG THREE TIMES PER DAY
     Dates: start: 20060410, end: 20060412
  2. PANSPORIN [Suspect]
     Indication: DRUG USE FOR UNKNOWN INDICATION
     Route: 065
  3. UNKNOWN MEDICATION [Concomitant]
     Route: 065

REACTIONS (2)
  - PNEUMONIA [None]
  - WHITE BLOOD CELL COUNT DECREASED [None]
